FAERS Safety Report 9770560 (Version 2)
Quarter: 2013Q4

REPORT INFORMATION
  Report Type: Spontaneous
  Country: IE (occurrence: IE)
  Receive Date: 20131218
  Receipt Date: 20131218
  Transmission Date: 20140711
  Serious: Yes (Other)
  Sender: FDA-Public Use
  Company Number: IE-009507513-1203GBR00083

PATIENT
  Sex: Female

DRUGS (1)
  1. FOSAMAX [Suspect]
     Indication: OSTEOPOROSIS
     Dosage: UNK
     Route: 048
     Dates: start: 2004, end: 20110107

REACTIONS (3)
  - Femur fracture [Unknown]
  - Intramedullary rod insertion [Unknown]
  - Medical device removal [Unknown]
